FAERS Safety Report 17192383 (Version 1)
Quarter: 2019Q4

REPORT INFORMATION
  Report Type: Spontaneous
  Country: GB (occurrence: GB)
  Receive Date: 20191223
  Receipt Date: 20191223
  Transmission Date: 20200122
  Serious: Yes (Death, Hospitalization)
  Sender: FDA-Public Use
  Company Number: GB-UCBSA-2019054113

PATIENT
  Age: 35 Year
  Sex: Female

DRUGS (2)
  1. EPILIM [Suspect]
     Active Substance: VALPROATE SODIUM
     Indication: EPILEPSY
     Dosage: 1400 MILLIGRAM, DAILY
     Route: 048
     Dates: start: 2013, end: 201812
  2. KEPPRA [Suspect]
     Active Substance: LEVETIRACETAM
     Indication: EPILEPSY
     Dosage: UNK
     Dates: start: 201812

REACTIONS (2)
  - Epilepsy [Not Recovered/Not Resolved]
  - Sudden unexplained death in epilepsy [Fatal]
